FAERS Safety Report 7201193-3 (Version None)
Quarter: 2010Q4

REPORT INFORMATION
  Report Type: 
  Country: None (occurrence: None)
  Receive Date: 20101214
  Receipt Date: 20101207
  Transmission Date: 20110411
  Serious: Yes (Other)
  Sender: FDA-Public Use
  Company Number: TOR 2010-0106

PATIENT
  Age: 34 Year
  Sex: Female
  Weight: 44 kg

DRUGS (4)
  1. FARESTON [Suspect]
     Indication: BREAST CANCER
     Dosage: 40 MG ORAL
     Route: 048
     Dates: start: 20040922, end: 20070711
  2. FLUOROURACIL [Suspect]
     Indication: BREAST CANCER
     Dosage: 150 MG ORAL
     Route: 048
     Dates: start: 20041013, end: 20060530
  3. HICEE [Concomitant]
  4. FERROUS CITRATE [Concomitant]

REACTIONS (6)
  - ABORTION INDUCED [None]
  - DRUG EXPOSURE BEFORE PREGNANCY [None]
  - DRUG EXPOSURE DURING PREGNANCY [None]
  - INTRA-UTERINE DEATH [None]
  - PREGNANCY [None]
  - SUPPRESSED LACTATION [None]
